FAERS Safety Report 23963842 (Version 3)
Quarter: 2024Q3

REPORT INFORMATION
  Report Type: Report from Study
  Country: US (occurrence: US)
  Receive Date: 20240611
  Receipt Date: 20240724
  Transmission Date: 20241017
  Serious: No
  Sender: APELLIS PHARMACEUTICALS
  Company Number: US-APELLIS-2024-APL-0000187

PATIENT

DRUGS (2)
  1. PEGCETACOPLAN [Suspect]
     Active Substance: PEGCETACOPLAN
     Indication: Immune-complex membranoproliferative glomerulonephritis
     Dosage: 648 MG, TWICE A WEEK
     Route: 058
     Dates: start: 20240514
  2. PEGCETACOPLAN [Suspect]
     Active Substance: PEGCETACOPLAN
     Route: 058
     Dates: start: 20240629

REACTIONS (3)
  - Infusion site pain [Recovered/Resolved]
  - Rash [Recovered/Resolved]
  - Infusion site pain [Unknown]

NARRATIVE: CASE EVENT DATE: 20240518
